FAERS Safety Report 15397582 (Version 5)
Quarter: 2019Q1

REPORT INFORMATION
  Report Type: Report from Study
  Country: ES (occurrence: ES)
  Receive Date: 20180918
  Receipt Date: 20190103
  Transmission Date: 20190417
  Serious: Yes (Life-Threatening, Hospitalization)
  Sender: FDA-Public Use
  Company Number: ES-ROCHE-2184640

PATIENT
  Age: 60 Year
  Sex: Male
  Weight: 91.2 kg

DRUGS (9)
  1. EUTIROX [Concomitant]
     Active Substance: LEVOTHYROXINE SODIUM
     Indication: HYPOTHYROIDISM
  2. RO 6874281 (FAP IL2V MAB) [Suspect]
     Active Substance: RO-6874281
     Indication: NEOPLASM
     Dosage: DATE OF MOST RECENT DOSE OF RO 6874281 (FAP IL2V MAB) (10 MG) PRIOR TO AE ONSET 10/SEP/2018 AT 13.36
     Route: 042
     Dates: start: 20180730
  3. OMEPRAZOL [Concomitant]
     Active Substance: OMEPRAZOLE
     Indication: PROPHYLAXIS
  4. RO 6874281 (FAP IL2V MAB) [Suspect]
     Active Substance: RO-6874281
     Dosage: DATE OF MOST RECENT DOSE OF RO6874281 (10 MG) PRIOR TO SAE ONSET: 10/SEP/2018
     Route: 042
  5. RANITIDINE. [Concomitant]
     Active Substance: RANITIDINE
     Indication: PREMEDICATION
     Route: 065
     Dates: start: 20180730, end: 20180730
  6. ATEZOLIZUMAB. [Suspect]
     Active Substance: ATEZOLIZUMAB
     Indication: NEOPLASM
     Dosage: DATE OF MOST RECENT DOSE OF ATEZOLIZUMAB (840 MG) PRIOR TO SAE ONSET 10/SEP/2018 AT 12.04
     Route: 042
     Dates: start: 20180730
  7. INDOMETACIN [Concomitant]
     Active Substance: INDOMETHACIN
     Indication: PREMEDICATION
     Route: 065
     Dates: start: 20180730, end: 20180730
  8. MASTICAL [Concomitant]
     Active Substance: CALCIUM CARBONATE
     Indication: PROPHYLAXIS
  9. PARACETAMOL [Concomitant]
     Active Substance: ACETAMINOPHEN
     Indication: PREMEDICATION
     Route: 065
     Dates: start: 20180730, end: 20180730

REACTIONS (1)
  - Anaphylactic reaction [Recovered/Resolved]

NARRATIVE: CASE EVENT DATE: 20180912
